FAERS Safety Report 20843266 (Version 8)
Quarter: 2022Q3

REPORT INFORMATION
  Report Type: Spontaneous
  Country: US (occurrence: US)
  Receive Date: 20220518
  Receipt Date: 20220715
  Transmission Date: 20221027
  Serious: No
  Sender: FDA-Public Use
  Company Number: US-BIOGEN-2019BI00797549

PATIENT
  Sex: Male

DRUGS (11)
  1. TYSABRI [Suspect]
     Active Substance: NATALIZUMAB
     Indication: Multiple sclerosis
     Route: 050
     Dates: start: 20120531
  2. TYSABRI [Suspect]
     Active Substance: NATALIZUMAB
     Dosage: INFUSED OVER 1 HOUR
     Route: 050
     Dates: start: 20070118, end: 20110608
  3. TYSABRI [Suspect]
     Active Substance: NATALIZUMAB
     Route: 050
  4. VITAMIN D3 [Concomitant]
     Active Substance: CHOLECALCIFEROL
     Dosage: TAKE 2 TABLETS (2000 UNITS TOTAL) BY MOUTH DAILY.
     Route: 050
     Dates: start: 20180815
  5. KLONOPIN [Concomitant]
     Active Substance: CLONAZEPAM
     Dosage: 1 TABLET MOUTH AT BEDTIME
     Route: 050
     Dates: start: 20210525, end: 20211115
  6. COZAAR [Concomitant]
     Active Substance: LOSARTAN POTASSIUM
     Dosage: 50 MG BY MOUTH DAILY
     Route: 050
  7. FISH OIL [Concomitant]
     Active Substance: FISH OIL
     Dosage: 2 G BY MOUTH AT BEDTIME, ORAL
     Route: 050
  8. ZOCOR [Concomitant]
     Active Substance: SIMVASTATIN
     Dosage: 20 MG BY MOUTH AT BEDTIME, ORAL
     Route: 050
  9. DESYREL [Concomitant]
     Active Substance: TRAZODONE HYDROCHLORIDE
     Dosage: TAKE 1 TABLET 100 MG TOTAL BY MOUTH AT BEDTIME.
     Route: 050
     Dates: start: 20210914, end: 20211115
  10. DESYREL [Concomitant]
     Active Substance: TRAZODONE HYDROCHLORIDE
     Dosage: TAKE 0.5 TABLETS (25 MG TOTAL) BY MOUTH AT BEDTIME.
     Route: 050
     Dates: start: 20201022
  11. EFFEXOR XR [Concomitant]
     Active Substance: VENLAFAXINE HYDROCHLORIDE
     Dosage: 150 MG AT NIGHT
     Route: 050

REACTIONS (13)
  - Inappropriate schedule of product administration [Not Recovered/Not Resolved]
  - Therapeutic response shortened [Unknown]
  - Prescribed underdose [Not Recovered/Not Resolved]
  - General physical health deterioration [Unknown]
  - Mental disorder [Unknown]
  - Stress [Unknown]
  - Insomnia [Unknown]
  - Malaise [Unknown]
  - Multiple sclerosis [Unknown]
  - Ureterolithiasis [Unknown]
  - Vitamin D deficiency [Unknown]
  - Upper respiratory tract infection [Unknown]
  - Fatigue [Unknown]

NARRATIVE: CASE EVENT DATE: 20070101
